FAERS Safety Report 10504548 (Version 1)
Quarter: 2014Q3

REPORT INFORMATION
  Report Type: Spontaneous
  Country: US (occurrence: None)
  Receive Date: 20140912
  Receipt Date: 20140912
  Transmission Date: 20150326
  Serious: Yes (Other)
  Sender: FDA-Public Use
  Company Number: 1000060537

PATIENT
  Age: 70 Year
  Sex: Male
  Weight: 190 kg

DRUGS (5)
  1. BYETTA [Concomitant]
     Active Substance: EXENATIDE
  2. DALIRESP [Suspect]
     Active Substance: ROFLUMILAST
     Dosage: 500MCG (500 MCG, 1 IN 1D) ORAL
     Route: 048
     Dates: start: 201402
  3. ZYLOPRIM [Concomitant]
     Active Substance: ALLOPURINOL
  4. LEVOTHYROXINE [Concomitant]
     Active Substance: LEVOTHYROXINE
  5. WARFARIN [Concomitant]
     Active Substance: WARFARIN

REACTIONS (1)
  - Weight decreased [None]

NARRATIVE: CASE EVENT DATE: 201402
